FAERS Safety Report 7796391-4 (Version None)
Quarter: 2011Q4

REPORT INFORMATION
  Report Type: 
  Country: None (occurrence: None)
  Receive Date: 20111005
  Receipt Date: 20110914
  Transmission Date: 20120403
  Serious: Yes (Other)
  Sender: FDA-Public Use
  Company Number: US-BIOGENIDEC-2011BI028080

PATIENT
  Age: 46 Year
  Sex: Female

DRUGS (3)
  1. DIAZEPAM [Concomitant]
     Indication: BAND SENSATION
     Dates: start: 20080101
  2. TYSABRI [Suspect]
     Indication: MULTIPLE SCLEROSIS
     Route: 042
     Dates: start: 20110103, end: 20110812
  3. BACLOFEN [Concomitant]
     Indication: BAND SENSATION
     Dates: start: 20080101

REACTIONS (9)
  - OROPHARYNGEAL PAIN [None]
  - MALAISE [None]
  - COGNITIVE DISORDER [None]
  - DYSPHONIA [None]
  - ASTHENIA [None]
  - PROGRESSIVE MULTIFOCAL LEUKOENCEPHALOPATHY [None]
  - SECONDARY PROGRESSIVE MULTIPLE SCLEROSIS [None]
  - VISUAL IMPAIRMENT [None]
  - COUGH [None]
